APPROVED DRUG PRODUCT: NITRO-BID
Active Ingredient: NITROGLYCERIN
Strength: 10MG/ML
Dosage Form/Route: INJECTABLE;INJECTION
Application: A071159 | Product #001
Applicant: SANOFI AVENTIS US LLC
Approved: Feb 28, 1990 | RLD: No | RS: No | Type: DISCN